FAERS Safety Report 9684259 (Version 1)
Quarter: 2013Q4

REPORT INFORMATION
  Report Type: Spontaneous
  Country: IT (occurrence: IT)
  Receive Date: 20131112
  Receipt Date: 20131112
  Transmission Date: 20140711
  Serious: Yes (Other)
  Sender: FDA-Public Use
  Company Number: IT-GLAXOSMITHKLINE-B0941956A

PATIENT
  Age: 46 Year
  Sex: Female

DRUGS (3)
  1. ZANTAC [Suspect]
     Indication: ABDOMINAL PAIN
     Route: 042
     Dates: start: 20130921
  2. TORADOL [Suspect]
     Indication: ABDOMINAL PAIN
     Route: 042
     Dates: start: 20130921
  3. SPASMEX [Suspect]
     Indication: ABDOMINAL PAIN
     Route: 042
     Dates: start: 20130921

REACTIONS (3)
  - Angioedema [Recovering/Resolving]
  - Swelling [Recovering/Resolving]
  - Urticaria [Recovering/Resolving]
